FAERS Safety Report 19027848 (Version 3)
Quarter: 2021Q4

REPORT INFORMATION
  Report Type: Spontaneous
  Country: US (occurrence: None)
  Receive Date: 20210318
  Receipt Date: 20211119
  Transmission Date: 20220303
  Serious: Yes (Death, Other)
  Sender: FDA-Public Use
  Company Number: 2021A146804

PATIENT
  Age: 61 Year
  Sex: Female

DRUGS (26)
  1. PRILOSEC [Suspect]
     Active Substance: OMEPRAZOLE MAGNESIUM
     Indication: Gastrooesophageal reflux disease
     Route: 048
     Dates: start: 2005
  2. PRILOSEC [Suspect]
     Active Substance: OMEPRAZOLE MAGNESIUM
     Indication: Gastrooesophageal reflux disease
     Route: 048
     Dates: start: 2005, end: 2018
  3. PRILOSEC OTC [Suspect]
     Active Substance: OMEPRAZOLE MAGNESIUM
     Indication: Gastrooesophageal reflux disease
     Route: 048
     Dates: start: 2005, end: 2018
  4. RENVELA [Concomitant]
     Active Substance: SEVELAMER CARBONATE
  5. XALATAN [Concomitant]
     Active Substance: LATANOPROST
  6. GABAPENTIN [Concomitant]
     Active Substance: GABAPENTIN
  7. PRAVASTATIN [Concomitant]
     Active Substance: PRAVASTATIN
  8. HYDROMORPHONE [Concomitant]
     Active Substance: HYDROMORPHONE
  9. FLOVENT [Concomitant]
     Active Substance: FLUTICASONE PROPIONATE
  10. AZITHROMYCIN [Concomitant]
     Active Substance: AZITHROMYCIN
  11. ACETAMINOPHEN\HYDROCODONE BITARTRATE [Concomitant]
     Active Substance: ACETAMINOPHEN\HYDROCODONE BITARTRATE
  12. LANTUS [Concomitant]
     Active Substance: INSULIN GLARGINE
  13. BETAMETHASONE [Concomitant]
     Active Substance: BETAMETHASONE
  14. NIFEDIPINE [Concomitant]
     Active Substance: NIFEDIPINE
  15. LORAZEPAM [Concomitant]
     Active Substance: LORAZEPAM
  16. MUPIROCIN [Concomitant]
     Active Substance: MUPIROCIN
  17. WARFARIN [Concomitant]
     Active Substance: WARFARIN
  18. SERTRALINE [Concomitant]
     Active Substance: SERTRALINE HYDROCHLORIDE
  19. LEVEMIR [Concomitant]
     Active Substance: INSULIN DETEMIR
  20. CALCITRIOL [Concomitant]
     Active Substance: CALCITRIOL
  21. TIMOLOL [Concomitant]
     Active Substance: TIMOLOL
  22. BRIMONIDINE [Concomitant]
     Active Substance: BRIMONIDINE TARTRATE
  23. PRAVASTATIN [Concomitant]
     Active Substance: PRAVASTATIN
     Indication: Blood cholesterol abnormal
     Route: 065
     Dates: start: 2011
  24. ATORVASTATIN [Concomitant]
     Active Substance: ATORVASTATIN
     Indication: Blood cholesterol abnormal
     Route: 065
     Dates: start: 2014
  25. TRAMADOL [Concomitant]
     Active Substance: TRAMADOL
     Indication: Pain
     Route: 065
     Dates: start: 2014
  26. SIMVASTATIN [Concomitant]
     Active Substance: SIMVASTATIN
     Indication: Blood cholesterol abnormal
     Route: 065
     Dates: start: 2009

REACTIONS (4)
  - Death [Fatal]
  - Acute kidney injury [Unknown]
  - Renal failure [Unknown]
  - Chronic kidney disease [Unknown]

NARRATIVE: CASE EVENT DATE: 20090101
